FAERS Safety Report 12206890 (Version 1)
Quarter: 2016Q1

REPORT INFORMATION
  Report Type: Spontaneous
  Country: US (occurrence: None)
  Receive Date: 20160323
  Receipt Date: 20160323
  Transmission Date: 20160526
  Serious: Yes (Disabling)
  Sender: FDA-Public Use
  Company Number: None

PATIENT
  Age: 70 Year
  Sex: Female
  Weight: 63.5 kg

DRUGS (7)
  1. VALACYCLOVIR [Suspect]
     Active Substance: VALACYCLOVIR HYDROCHLORIDE
     Indication: HERPES ZOSTER
     Route: 048
     Dates: start: 20160121, end: 20160128
  2. VITAMIN D3 [Concomitant]
     Active Substance: CHOLECALCIFEROL
  3. SELENIUM [Concomitant]
     Active Substance: SELENIUM
  4. BIOTIN [Concomitant]
     Active Substance: BIOTIN
  5. CAL-MAG [Concomitant]
  6. FISH OIL [Concomitant]
     Active Substance: FISH OIL
  7. ARMOUR THYROID [Concomitant]
     Active Substance: THYROID, PORCINE

REACTIONS (3)
  - Systemic lupus erythematosus [None]
  - Cardiac disorder [None]
  - Renal disorder [None]

NARRATIVE: CASE EVENT DATE: 20160311
